FAERS Safety Report 9857397 (Version 2)
Quarter: 2014Q1

REPORT INFORMATION
  Report Type: Spontaneous
  Country: CA (occurrence: CA)
  Receive Date: 20140131
  Receipt Date: 20140131
  Transmission Date: 20141002
  Serious: Yes (Other)
  Sender: FDA-Public Use
  Company Number: CA-PFIZER INC-2014025581

PATIENT
  Sex: Female

DRUGS (2)
  1. ADVIL COLD AND SINUS LIQUI-GELS [Suspect]
     Dosage: UNK
     Dates: start: 201401, end: 201401
  2. DILANTIN [Interacting]
     Dosage: UNK

REACTIONS (3)
  - Drug interaction [Unknown]
  - Convulsion [Unknown]
  - Product quality issue [Unknown]
